FAERS Safety Report 7073292-0 (Version None)
Quarter: 2010Q4

REPORT INFORMATION
  Report Type: 
  Country: None (occurrence: None)
  Receive Date: 20101029
  Receipt Date: 20100524
  Transmission Date: 20110411
  Serious: No
  Sender: FDA-Public Use
  Company Number: A0861046A

PATIENT
  Sex: Male

DRUGS (7)
  1. ADVAIR DISKUS 100/50 [Suspect]
     Indication: CHRONIC OBSTRUCTIVE PULMONARY DISEASE
     Dosage: 1PUFF TWICE PER DAY
     Route: 055
     Dates: start: 20090423
  2. ACIPHEX [Concomitant]
  3. LEVOTHYROXINE [Concomitant]
  4. MECLIZINE [Concomitant]
  5. TRAMADOL [Concomitant]
  6. OXYCODONE HCL AND ACETAMINOPHEN [Concomitant]
  7. ADVIL [Concomitant]

REACTIONS (2)
  - MEDICAL DEVICE COMPLICATION [None]
  - TOOTH DISORDER [None]
